FAERS Safety Report 18002021 (Version 1)
Quarter: 2020Q3

REPORT INFORMATION
  Report Type: Spontaneous
  Country: ES (occurrence: ES)
  Receive Date: 20200709
  Receipt Date: 20200709
  Transmission Date: 20201103
  Serious: Yes (Hospitalization)
  Sender: FDA-Public Use
  Company Number: NVSC2020ES186776

PATIENT
  Age: 60 Year
  Sex: Male

DRUGS (7)
  1. DEXAMETASONA [Suspect]
     Active Substance: DEXAMETHASONE
     Dosage: UNK
     Route: 048
     Dates: start: 20200428
  2. DURVALUMAB. [Suspect]
     Active Substance: DURVALUMAB
     Dosage: 750 MG, BIW (10 MG/KG)
     Route: 042
     Dates: start: 20200411
  3. DEXAMETASONA [Suspect]
     Active Substance: DEXAMETHASONE
     Indication: PNEUMONITIS
     Dosage: UNK
     Route: 048
     Dates: start: 20200408
  4. AMOXICILLIN,CLAVULANIC ACID [Suspect]
     Active Substance: AMOXICILLIN\CLAVULANIC ACID
     Indication: PRODUCT USED FOR UNKNOWN INDICATION
     Dosage: 1 DF, Q8H
     Route: 048
     Dates: start: 20200405
  5. DURVALUMAB. [Suspect]
     Active Substance: DURVALUMAB
     Indication: LUNG ADENOCARCINOMA STAGE III
     Dosage: 750 MG, BIW (10 MG/KG)
     Route: 042
     Dates: start: 20200226
  6. ORFIDAL [Concomitant]
     Active Substance: LORAZEPAM
     Indication: PRODUCT USED FOR UNKNOWN INDICATION
     Dosage: 1 MG, QD (0?0?0?1)
     Route: 065
     Dates: start: 20190828
  7. AMOXICILLIN,CLAVULANIC ACID [Suspect]
     Active Substance: AMOXICILLIN\CLAVULANIC ACID
     Dosage: 1 DF, Q8H
     Route: 048
     Dates: start: 20200414

REACTIONS (1)
  - Pancreatitis acute [Recovering/Resolving]

NARRATIVE: CASE EVENT DATE: 20200521
